FAERS Safety Report 7246386-4 (Version None)
Quarter: 2011Q1

REPORT INFORMATION
  Report Type: 
  Country: None (occurrence: None)
  Receive Date: 20110126
  Receipt Date: 20110121
  Transmission Date: 20110831
  Serious: Yes (Death)
  Sender: FDA-Public Use
  Company Number: JP-GENENTECH-312754

PATIENT
  Age: 91 Year
  Sex: Female

DRUGS (4)
  1. ACTIVACIN [Suspect]
     Indication: CEREBRAL INFARCTION
     Dosage: 13.92 MU, QD
     Route: 042
     Dates: start: 20110101, end: 20110101
  2. RADICUT [Suspect]
     Indication: CEREBRAL INFARCTION
     Dosage: 30 MG, QD
     Dates: start: 20110101, end: 20110101
  3. ALEVIATIN [Suspect]
     Indication: PRODUCT USED FOR UNKNOWN INDICATION
     Dosage: UNK
     Route: 065
  4. TAKEPRON [Suspect]
     Indication: PRODUCT USED FOR UNKNOWN INDICATION
     Dosage: UNK
     Route: 048

REACTIONS (1)
  - LUNG DISORDER [None]
